FAERS Safety Report 7428866-1 (Version None)
Quarter: 2011Q2

REPORT INFORMATION
  Report Type: 
  Country: None (occurrence: None)
  Receive Date: 20110413
  Receipt Date: 20110331
  Transmission Date: 20111010
  Serious: No
  Sender: FDA-Public Use
  Company Number: 024849

PATIENT
  Sex: Female

DRUGS (8)
  1. ACTONEL [Concomitant]
  2. K-DUR [Concomitant]
  3. RAPAMUNE [Concomitant]
  4. PREDNISONE [Concomitant]
  5. NAPROXEN [Concomitant]
  6. RAMIPRIL [Concomitant]
  7. CIMZIA [Suspect]
     Indication: RHEUMATOID ARTHRITIS
     Dosage: 400 MG 1X/2 WEEKS, 3 DOSES SUBCUTANEOUS
     Route: 058
     Dates: start: 20101224, end: 20110101
  8. INDAPAMIDE [Concomitant]

REACTIONS (2)
  - HEPATIC ENZYME INCREASED [None]
  - DRUG HYPERSENSITIVITY [None]
